FAERS Safety Report 9669461 (Version 3)
Quarter: 2014Q1

REPORT INFORMATION
  Report Type: Spontaneous
  Country: BR (occurrence: BR)
  Receive Date: 20131105
  Receipt Date: 20140212
  Transmission Date: 20141002
  Serious: Yes (Hospitalization, Other)
  Sender: FDA-Public Use
  Company Number: BR-PFIZER INC-2013312536

PATIENT
  Age: 80 Year
  Sex: Female
  Weight: 60 kg

DRUGS (13)
  1. ATENOLOL [Suspect]
     Indication: HYPERTENSION
     Dosage: 50 MG, DAILY
     Route: 065
     Dates: start: 2012
  2. ATENOLOL [Suspect]
     Indication: ARRHYTHMIA
  3. NEXIUM [Suspect]
     Indication: GASTROOESOPHAGEAL REFLUX DISEASE
     Dosage: 20 MG, DAILY (MORNING)
     Route: 048
     Dates: start: 2009
  4. NEXIUM [Suspect]
     Indication: PROPHYLAXIS
  5. ATACAND [Suspect]
     Indication: HYPERTENSION
     Dosage: 8 MG, DAILY (MORNING)
     Route: 048
     Dates: start: 201304, end: 20131013
  6. ATACAND [Suspect]
     Dosage: 16 MG, DAILY (MORNING)
     Route: 048
     Dates: start: 20131014
  7. CRESTOR [Suspect]
     Indication: BLOOD CHOLESTEROL INCREASED
     Dosage: 5 MG, DAILY
     Route: 048
     Dates: start: 201304
  8. SIMVASTATIN [Suspect]
     Indication: BLOOD CHOLESTEROL INCREASED
     Dosage: UNK
     Dates: end: 201304
  9. ACTONEL [Concomitant]
     Dosage: UNK
     Route: 065
     Dates: start: 2003
  10. MOTILIUM [Concomitant]
     Indication: GASTROOESOPHAGEAL REFLUX DISEASE
     Dosage: UNK
     Route: 065
     Dates: start: 2011
  11. GLIFAGE [Concomitant]
     Indication: DIABETES MELLITUS MANAGEMENT
     Dosage: 500 MG, UNK
     Route: 065
     Dates: start: 2008
  12. AROMASIN [Concomitant]
     Indication: BREAST CANCER
     Dosage: UNK
     Route: 065
     Dates: start: 2012
  13. MANIVASC [Concomitant]
     Indication: BLOOD PRESSURE INCREASED
     Dosage: UNK
     Route: 065
     Dates: start: 201309

REACTIONS (3)
  - Breast cancer female [Unknown]
  - Drug ineffective [Unknown]
  - Carotid arteriosclerosis [Unknown]
